FAERS Safety Report 5480090-8 (Version None)
Quarter: 2007Q4

REPORT INFORMATION
  Report Type: 
  Country: None (occurrence: None)
  Receive Date: 20071008
  Receipt Date: 20070926
  Transmission Date: 20080405
  Serious: Yes (Other)
  Sender: FDA-Public Use
  Company Number: US-PFIZER INC-2007082583

PATIENT
  Sex: Female
  Weight: 81.8 kg

DRUGS (5)
  1. CHANTIX [Suspect]
     Indication: SMOKING CESSATION THERAPY
     Dates: start: 20070701, end: 20070901
  2. PRILOSEC [Concomitant]
  3. ZANTAC [Concomitant]
  4. THYROID HORMONES [Concomitant]
  5. PROCARDIA XL [Concomitant]

REACTIONS (9)
  - AFFECT LABILITY [None]
  - ANXIETY [None]
  - ASPIRATION [None]
  - COUGH [None]
  - DYSPEPSIA [None]
  - GASTROOESOPHAGEAL REFLUX DISEASE [None]
  - IRRITABILITY [None]
  - SLEEP DISORDER [None]
  - WHEEZING [None]
